FAERS Safety Report 12980782 (Version 1)
Quarter: 2016Q4

REPORT INFORMATION
  Report Type: Spontaneous
  Country: US (occurrence: US)
  Receive Date: 20161128
  Receipt Date: 20161128
  Transmission Date: 20170207
  Serious: No
  Sender: FDA-Public Use
  Company Number: US-PFIZER INC-2016541174

PATIENT
  Age: 57 Year
  Sex: Male
  Weight: 68 kg

DRUGS (13)
  1. GABAPENTIN. [Concomitant]
     Active Substance: GABAPENTIN
     Indication: NECK PAIN
     Dosage: 300 MG, AS NEEDED (3 TIMES A DAY)
     Dates: start: 20160710
  2. TDAP IMMUN [Concomitant]
     Indication: IMMUNISATION
     Dosage: UNK
  3. LISINOPRIL. [Concomitant]
     Active Substance: LISINOPRIL
     Indication: PROTEINURIA
     Dosage: 10 MG, DAILY
     Dates: start: 20150930
  4. METFORMIN HCL [Concomitant]
     Active Substance: METFORMIN HYDROCHLORIDE
     Dosage: 500 MG, DAILY
     Dates: start: 20160606
  5. TRAMADOL HCL [Concomitant]
     Active Substance: TRAMADOL HYDROCHLORIDE
     Indication: NECK PAIN
     Dosage: 50 MG, AS NEEDED (EVERY 6 HOURS)
     Dates: start: 20160710
  6. PNEUMOVAX 23 [Concomitant]
     Active Substance: PNEUMOCOCCAL VACCINE, POLYVALENT 23
     Indication: IMMUNISATION
     Dosage: UNK
  7. VIAGRA [Suspect]
     Active Substance: SILDENAFIL CITRATE
     Indication: SEXUAL DYSFUNCTION
     Dosage: 50 MG, UNK (1 TABLET Q 30 MIN-4 HRS BEFORE SEXUAL ACTIVITY)
     Route: 048
     Dates: start: 20161115
  8. ASPIRIN. [Concomitant]
     Active Substance: ASPIRIN
     Indication: TYPE 2 DIABETES MELLITUS
     Dosage: 81 MG, DAILY
     Dates: start: 20150930
  9. OMEPRAZOLE. [Concomitant]
     Active Substance: OMEPRAZOLE
     Dosage: 40 MG, DAILY
     Dates: start: 20160708
  10. ATORVASTATIN CALCIUM. [Concomitant]
     Active Substance: ATORVASTATIN CALCIUM
     Dosage: 40 MG, 1X/DAY (AT BEDTIME)
     Dates: start: 20151001
  11. MOBIC [Concomitant]
     Active Substance: MELOXICAM
     Indication: NECK PAIN
     Dosage: 7.5 MG, DAILY
     Dates: start: 20160710
  12. FLU [Concomitant]
     Active Substance: INFLUENZA VIRUS VACCINE
     Indication: IMMUNISATION
     Dosage: UNK
  13. HEPATITIS B [Concomitant]
     Active Substance: HUMAN HEPATITIS B VIRUS IMMUNE GLOBULIN
     Indication: IMMUNISATION
     Dosage: UNK

REACTIONS (3)
  - Intentional product misuse [Unknown]
  - Blood prolactin increased [Unknown]
  - Product use issue [Unknown]
